FAERS Safety Report 17500690 (Version 1)
Quarter: 2020Q1

REPORT INFORMATION
  Report Type: Spontaneous
  Country: JP (occurrence: JP)
  Receive Date: 20200305
  Receipt Date: 20200305
  Transmission Date: 20200409
  Serious: Yes (Other)
  Sender: FDA-Public Use
  Company Number: NVSJ2020JP002840

PATIENT
  Age: 10 Year
  Sex: Male

DRUGS (1)
  1. TEGRAL [Suspect]
     Active Substance: CARBAMAZEPINE
     Indication: EPILEPSY
     Dosage: 350 MG, UNK
     Route: 048

REACTIONS (1)
  - Optic atrophy [Unknown]
